FAERS Safety Report 17810730 (Version 1)
Quarter: 2020Q2

REPORT INFORMATION
  Report Type: Report from Study
  Country: ES (occurrence: ES)
  Receive Date: 20200521
  Receipt Date: 20200521
  Transmission Date: 20200714
  Serious: Yes (Death, Hospitalization, Other)
  Sender: FDA-Public Use
  Company Number: ES-BRISTOL-MYERS SQUIBB COMPANY-BMS-2020-038648

PATIENT
  Age: 24 Year
  Sex: Female

DRUGS (14)
  1. DIAZEPAM. [Concomitant]
     Active Substance: DIAZEPAM
     Indication: ANXIETY
     Dosage: UNK
     Route: 065
     Dates: start: 20190423
  2. PREGABALIN. [Concomitant]
     Active Substance: PREGABALIN
     Indication: PAIN
     Dosage: UNK
     Route: 065
     Dates: start: 20190410
  3. FENTANYL. [Concomitant]
     Active Substance: FENTANYL
     Indication: PAIN
     Dosage: UNK
     Route: 065
     Dates: start: 20190414
  4. DEXAMETHASONE. [Concomitant]
     Active Substance: DEXAMETHASONE
     Indication: PAIN
     Dosage: UNK
     Route: 065
     Dates: start: 20190412
  5. TIROXIN [LEVOTHYROXINE SODIUM] [Concomitant]
     Active Substance: LEVOTHYROXINE SODIUM
     Indication: PRODUCT USED FOR UNKNOWN INDICATION
     Route: 065
  6. RANITIDINE. [Concomitant]
     Active Substance: RANITIDINE
     Indication: ABDOMINAL PAIN UPPER
     Dosage: UNK
     Route: 065
     Dates: start: 20190423
  7. NIVOLUMAB [Suspect]
     Active Substance: NIVOLUMAB
     Indication: CLEAR CELL SARCOMA OF SOFT TISSUE
     Dosage: 3 MILLIGRAM/KILOGRAM, Q2WK
     Route: 042
     Dates: start: 20180926, end: 20190417
  8. SUNITINIB MALATE. [Suspect]
     Active Substance: SUNITINIB MALATE
     Indication: PRODUCT USED FOR UNKNOWN INDICATION
     Dosage: 25 MILLIGRAM
     Route: 048
     Dates: start: 20181205, end: 20190402
  9. METOCLOPRAMIDE. [Concomitant]
     Active Substance: METOCLOPRAMIDE
     Indication: VOMITING
     Route: 065
  10. FUROSEMIDE. [Concomitant]
     Active Substance: FUROSEMIDE
     Indication: PAIN
     Route: 065
  11. SUNITINIB MALATE. [Suspect]
     Active Substance: SUNITINIB MALATE
     Indication: CLEAR CELL SARCOMA OF SOFT TISSUE
     Dosage: 37.5 MILLIGRAM
     Route: 048
     Dates: start: 20180912, end: 20181204
  12. METAMIZOLE [Concomitant]
     Active Substance: METAMIZOLE
     Indication: PAIN
     Route: 065
  13. SUNITINIB MALATE. [Suspect]
     Active Substance: SUNITINIB MALATE
     Indication: PRODUCT USED FOR UNKNOWN INDICATION
     Dosage: 37.5 MILLIGRAM
     Route: 048
     Dates: start: 20190403, end: 20190423
  14. AMOXICILLIN SODIUM;CLAVULANIC ACID [Concomitant]
     Indication: INFECTED NEOPLASM
     Dosage: UNK
     Route: 065
     Dates: start: 20190420, end: 20190424

REACTIONS (3)
  - Pyrexia [Unknown]
  - Tumour pain [Unknown]
  - Death [Fatal]

NARRATIVE: CASE EVENT DATE: 20190424
